FAERS Safety Report 8861171 (Version 2)
Quarter: 2013Q2

REPORT INFORMATION
  Report Type: Spontaneous
  Country: US (occurrence: None)
  Receive Date: 20120426
  Receipt Date: 20120703
  Transmission Date: 20140414
  Serious: Yes (Other)
  Sender: FDA-Public Use
  Company Number: PHEH2011US013010

PATIENT
  Age: 42 Year
  Sex: Female
  Weight: 106.1 kg

DRUGS (1)
  1. GILENYA [Suspect]
     Indication: MULTIPLE SCLEROSIS
     Route: 048
     Dates: start: 20110725

REACTIONS (9)
  - Visual impairment [None]
  - Oropharyngeal pain [None]
  - Pyrexia [None]
  - Inappropriate schedule of drug administration [None]
  - Aspartate aminotransferase increased [None]
  - White blood cell count decreased [None]
  - Hepatic enzyme increased [None]
  - CD4/CD8 ratio decreased [None]
  - Alanine aminotransferase increased [None]
